FAERS Safety Report 16469293 (Version 1)
Quarter: 2019Q3

REPORT INFORMATION
  Report Type: Spontaneous
  Country: US (occurrence: US)
  Receive Date: 20190621
  Receipt Date: 20190621
  Transmission Date: 20191004
  Serious: Yes (Hospitalization)
  Sender: FDA-Public Use
  Company Number: None

PATIENT
  Age: 60 Year
  Sex: Female

DRUGS (14)
  1. VITAMIN D3 CAP 5000 UNIT [Concomitant]
  2. DILTIAZEM CAP 360 MG ER [Concomitant]
  3. ATORVASTATIN TAB 80 MG [Concomitant]
  4. GABAPENTIN CAP 100 MG [Concomitant]
     Active Substance: GABAPENTIN
  5. ALLOPURINOL TAB 100 MG [Concomitant]
  6. IBRANCE [Suspect]
     Active Substance: PALBOCICLIB
     Indication: BREAST CANCER FEMALE
     Route: 048
     Dates: start: 20190205
  7. METOCLOPRAM TAB 5 MG [Concomitant]
  8. WARFARIN TAB 7.5 MG [Concomitant]
  9. LEVEMIR INJ [Concomitant]
  10. CARVEDILOL. [Concomitant]
     Active Substance: CARVEDILOL
  11. NOVOLOG [Concomitant]
     Active Substance: INSULIN ASPART
  12. SEVELAMER TAB 800 MG [Concomitant]
  13. ANASTRAZOLE TAB 1 MG [Concomitant]
  14. ASPIRIN 81 TAB EC [Concomitant]

REACTIONS (4)
  - Diarrhoea [None]
  - Therapy cessation [None]
  - Nausea [None]
  - Herpes zoster [None]
